FAERS Safety Report 6006862-9 (Version None)
Quarter: 2008Q4

REPORT INFORMATION
  Report Type: 
  Country: None (occurrence: None)
  Receive Date: 20081217
  Receipt Date: 20071115
  Transmission Date: 20090506
  Serious: No
  Sender: FDA-Public Use
  Company Number: US-ASTRAZENECA-2007UW26006

PATIENT
  Age: 69 Year
  Sex: Female
  Weight: 44.9 kg

DRUGS (3)
  1. CRESTOR [Suspect]
     Indication: BLOOD CHOLESTEROL INCREASED
     Route: 048
     Dates: start: 20070701
  2. PROTONIX [Concomitant]
  3. ASPIRIN [Concomitant]

REACTIONS (3)
  - ANOREXIA [None]
  - DEPRESSION [None]
  - WEIGHT DECREASED [None]
